FAERS Safety Report 4387325-3 (Version None)
Quarter: 2004Q2

REPORT INFORMATION
  Report Type: 
  Country: None (occurrence: None)
  Receive Date: 20040630
  Receipt Date: 20040412
  Transmission Date: 20050107
  Serious: No
  Sender: FDA-Public Use
  Company Number: US-GLAXOSMITHKLINE-A0506558A

PATIENT
  Age: 7 Year
  Sex: Male
  Weight: 30.9 kg

DRUGS (4)
  1. ADVAIR HFA [Suspect]
     Indication: ASTHMA
     Dosage: 1PUFF TWICE PER DAY
     Route: 055
     Dates: start: 20030101
  2. SINGULAIR [Suspect]
     Indication: ASTHMA
     Dosage: 5MG PER DAY
     Route: 048
     Dates: start: 20030101
  3. ZYRTEC [Concomitant]
     Dosage: 5MG PER DAY
     Route: 048
     Dates: start: 20020101
  4. NAPROSYN [Concomitant]
     Indication: HEADACHE
     Dosage: 2TSP TWICE PER DAY
     Route: 048
     Dates: start: 20040406

REACTIONS (1)
  - MIGRAINE [None]
